FAERS Safety Report 16805399 (Version 1)
Quarter: 2019Q3

REPORT INFORMATION
  Report Type: Spontaneous
  Country: US (occurrence: US)
  Receive Date: 20190913
  Receipt Date: 20190913
  Transmission Date: 20191005
  Serious: Yes (Death)
  Sender: FDA-Public Use
  Company Number: PHHY2019US211340

PATIENT
  Age: 21 Year
  Sex: Female

DRUGS (3)
  1. ARGATROBAN. [Suspect]
     Active Substance: ARGATROBAN
     Indication: DEEP VEIN THROMBOSIS
     Dosage: UNK
     Route: 051
  2. WARFARIN POTASSIUM [Concomitant]
     Active Substance: WARFARIN POTASSIUM
     Indication: PRODUCT USED FOR UNKNOWN INDICATION
     Route: 065
  3. AMPHOTERICIN B, LIPOSOME [Concomitant]
     Active Substance: AMPHOTERICIN B
     Indication: PRODUCT USED FOR UNKNOWN INDICATION
     Route: 065

REACTIONS (8)
  - Off label use [Unknown]
  - Intra-abdominal haemorrhage [Fatal]
  - Mucormycosis [Fatal]
  - Pulseless electrical activity [Fatal]
  - Haemoglobin decreased [Fatal]
  - Infective aortitis [Fatal]
  - Mediastinitis [Fatal]
  - Myocarditis mycotic [Fatal]
